FAERS Safety Report 4390217-7 (Version None)
Quarter: 2004Q3

REPORT INFORMATION
  Report Type: 
  Country: None (occurrence: None)
  Receive Date: 20040706
  Receipt Date: 20040514
  Transmission Date: 20050211
  Serious: Yes (Other)
  Sender: FDA-Public Use
  Company Number: FR-BRISTOL-MYERS SQUIBB COMPANY-12587333

PATIENT
  Age: 48 Year
  Sex: Male

DRUGS (4)
  1. APROVEL TABS 300 MG [Suspect]
     Indication: HYPERTENSION
     Route: 048
     Dates: start: 19990101, end: 20040514
  2. LEXOMIL [Concomitant]
     Indication: DEPRESSION
  3. TRANXENE [Concomitant]
  4. IMOVANE [Concomitant]

REACTIONS (5)
  - ALANINE AMINOTRANSFERASE [None]
  - ASPARTATE AMINOTRANSFERASE INCREASED [None]
  - BLOOD CREATINE PHOSPHOKINASE INCREASED [None]
  - BLOOD CREATINE PHOSPHOKINASE MB [None]
  - PAIN [None]
